FAERS Safety Report 13560224 (Version 1)
Quarter: 2017Q2

REPORT INFORMATION
  Report Type: Spontaneous
  Country: FR (occurrence: FR)
  Receive Date: 20170518
  Receipt Date: 20170518
  Transmission Date: 20170830
  Serious: Yes (Hospitalization)
  Sender: FDA-Public Use
  Company Number: FR-PFIZER INC-2017211636

PATIENT
  Age: 27 Year
  Sex: Male

DRUGS (4)
  1. VALIUM [Suspect]
     Active Substance: DIAZEPAM
     Indication: ANXIETY
     Dosage: 10 MG, SINGLE
     Route: 048
     Dates: start: 20170210, end: 20170210
  2. TERCIAN /00759301/ [Suspect]
     Active Substance: CYAMEMAZINE
     Indication: ABNORMAL BEHAVIOUR
     Dosage: 100 MG, SINGLE
     Route: 048
     Dates: start: 20170210, end: 20170210
  3. IMOVANE [Suspect]
     Active Substance: ZOPICLONE
     Dosage: 22.5 MG (7.5 MG X3), SINGLE
     Route: 048
     Dates: start: 20170210, end: 20170210
  4. XANAX [Suspect]
     Active Substance: ALPRAZOLAM
     Dosage: 15 MG (0.5 MG X30), SINGLE
     Route: 048
     Dates: start: 20170210, end: 20170210

REACTIONS (3)
  - Hypotension [Recovered/Resolved]
  - Suicide attempt [Unknown]
  - Malaise [Unknown]

NARRATIVE: CASE EVENT DATE: 20170210
